FAERS Safety Report 19038457 (Version 1)
Quarter: 2021Q1

REPORT INFORMATION
  Report Type: Spontaneous
  Country: FR (occurrence: FR)
  Receive Date: 20210322
  Receipt Date: 20210322
  Transmission Date: 20210420
  Serious: Yes (Hospitalization)
  Sender: FDA-Public Use
  Company Number: FR-PFIZER INC-2021250426

PATIENT
  Age: 96 Year
  Sex: Female
  Weight: 70 kg

DRUGS (13)
  1. TRIMEBUTINE [Concomitant]
     Active Substance: TRIMEBUTINE
  2. PREGABALIN. [Suspect]
     Active Substance: PREGABALIN
     Dosage: 75 MG, 1X/DAY (IN THE MORNING)
     Route: 048
  3. IMOVANE [Suspect]
     Active Substance: ZOPICLONE
     Dosage: 1 DF, 1X/DAY
     Route: 048
  4. FUROSEMIDE. [Concomitant]
     Active Substance: FUROSEMIDE
  5. PREGABALIN. [Suspect]
     Active Substance: PREGABALIN
     Dosage: 100 MG, 1X/DAY (AT NIGHT)
     Route: 048
  6. RAMIPRIL. [Concomitant]
     Active Substance: RAMIPRIL
  7. DIFFU K [Concomitant]
     Active Substance: POTASSIUM CHLORIDE
  8. COMIRNATY [Suspect]
     Active Substance: TOZINAMERAN
     Indication: COVID-19 IMMUNISATION
     Dosage: SINGLE DOSE
     Route: 030
     Dates: start: 20210119, end: 20210119
  9. VENTOLINE [SALBUTAMOL SULFATE] [Concomitant]
     Active Substance: ALBUTEROL SULFATE
  10. SERESTA [Suspect]
     Active Substance: OXAZEPAM
     Dosage: 1 DF, 1X/DAY
     Route: 048
  11. XARELTO [Concomitant]
     Active Substance: RIVAROXABAN
  12. PANTOPRAZOLE [Concomitant]
     Active Substance: PANTOPRAZOLE
  13. BISOPROLOL [Concomitant]
     Active Substance: BISOPROLOL

REACTIONS (2)
  - Hallucination [Not Recovered/Not Resolved]
  - Behaviour disorder [Not Recovered/Not Resolved]

NARRATIVE: CASE EVENT DATE: 20210122
